FAERS Safety Report 10594344 (Version 1)
Quarter: 2014Q4

REPORT INFORMATION
  Report Type: Report from Study
  Country: BR (occurrence: BR)
  Receive Date: 20141119
  Receipt Date: 20141119
  Transmission Date: 20150529
  Serious: Yes (Other)
  Sender: FDA-Public Use
  Company Number: BR-ABBVIE-14K-020-1308796-00

PATIENT
  Sex: Female
  Weight: 70 kg

DRUGS (2)
  1. UNKNOWN MEDICATIONS [Concomitant]
     Active Substance: UNSPECIFIED INGREDIENT
     Indication: PRODUCT USED FOR UNKNOWN INDICATION
  2. HUMIRA [Suspect]
     Active Substance: ADALIMUMAB
     Indication: RHEUMATOID ARTHRITIS
     Route: 058
     Dates: start: 2012

REACTIONS (4)
  - Rheumatic disorder [Unknown]
  - Osteoarthritis [Recovered/Resolved]
  - Gait disturbance [Not Recovered/Not Resolved]
  - Limb deformity [Not Recovered/Not Resolved]

NARRATIVE: CASE EVENT DATE: 2012
